FAERS Safety Report 6191646-1 (Version None)
Quarter: 2009Q2

REPORT INFORMATION
  Report Type: 
  Country: None (occurrence: None)
  Receive Date: 20090515
  Receipt Date: 20090515
  Transmission Date: 20091009
  Serious: Yes (Other)
  Sender: FDA-Public Use
  Company Number: US-PFIZER INC-2009168134

PATIENT
  Sex: Female
  Weight: 77.11 kg

DRUGS (4)
  1. DETROL LA [Suspect]
     Indication: BLADDER DISORDER
     Dates: start: 20090201
  2. DRUG USED IN DIABETES [Concomitant]
  3. VITAMINS [Concomitant]
  4. ANTIHYPERTENSIVES [Concomitant]

REACTIONS (2)
  - BLOOD MAGNESIUM DECREASED [None]
  - PAIN [None]
